FAERS Safety Report 14522338 (Version 1)
Quarter: 2018Q1

REPORT INFORMATION
  Report Type: Spontaneous
  Country: CZ (occurrence: CZ)
  Receive Date: 20180212
  Receipt Date: 20180212
  Transmission Date: 20180509
  Serious: Yes (Death)
  Sender: FDA-Public Use
  Company Number: CZ-MYLANLABS-2018M1009107

PATIENT
  Sex: Male

DRUGS (2)
  1. PRADAXA [Interacting]
     Active Substance: DABIGATRAN ETEXILATE MESYLATE
     Indication: ANTICOAGULANT THERAPY
     Dates: end: 20140916
  2. WARFARIN [Suspect]
     Active Substance: WARFARIN
     Indication: PRODUCT USED FOR UNKNOWN INDICATION
     Dosage: 5 MG, QD
     Dates: start: 20140912

REACTIONS (13)
  - Drug prescribing error [Unknown]
  - Pyrexia [Unknown]
  - Condition aggravated [Unknown]
  - Accidental overdose [Unknown]
  - Foaming at mouth [Unknown]
  - Pneumonia [Unknown]
  - Labelled drug-drug interaction medication error [Unknown]
  - Aspiration [Unknown]
  - Cerebral haemorrhage [Fatal]
  - International normalised ratio increased [Unknown]
  - Vomiting [Unknown]
  - Loss of consciousness [Unknown]
  - Mouth haemorrhage [Unknown]

NARRATIVE: CASE EVENT DATE: 20140912
